FAERS Safety Report 8469497-4 (Version None)
Quarter: 2012Q2

REPORT INFORMATION
  Report Type: 
  Country: None (occurrence: None)
  Receive Date: 20120626
  Receipt Date: 20120612
  Transmission Date: 20120825
  Serious: No
  Sender: FDA-Public Use
  Company Number: US-ASTRAZENECA-2012SE39339

PATIENT
  Sex: Female

DRUGS (1)
  1. NEXIUM [Suspect]
     Indication: DUODENAL ULCER
     Route: 048
     Dates: start: 20120601, end: 20120601

REACTIONS (4)
  - DRY MOUTH [None]
  - DIZZINESS [None]
  - VISION BLURRED [None]
  - OFF LABEL USE [None]
